FAERS Safety Report 23728654 (Version 1)
Quarter: 2024Q2

REPORT INFORMATION
  Report Type: Spontaneous
  Country: US (occurrence: None)
  Receive Date: 20240409
  Receipt Date: 20240409
  Transmission Date: 20240715
  Serious: No
  Sender: FDA-Public Use
  Company Number: None

PATIENT
  Age: 80 Year
  Sex: Male
  Weight: 75.3 kg

DRUGS (8)
  1. REPATHA [Suspect]
     Active Substance: EVOLOCUMAB
     Indication: Lipids increased
     Dosage: ONE INJECTION ONLY RECEIFED  2 INJECTION TWICE A MONTH  INJECTION
     Dates: start: 20240223, end: 20240323
  2. REPATHA [Suspect]
     Active Substance: EVOLOCUMAB
     Indication: Blood cholesterol increased
  3. ASPIRIN [Concomitant]
     Active Substance: ASPIRIN
  4. VITAMIN D3 [Concomitant]
     Active Substance: CHOLECALCIFEROL
  5. ZOLPIDEM TARTRATE [Concomitant]
     Active Substance: ZOLPIDEM TARTRATE
  6. NASACORT ALLERGY 24HR [Concomitant]
     Active Substance: TRIAMCINOLONE ACETONIDE
  7. VITAMIN D3 [Concomitant]
     Active Substance: CHOLECALCIFEROL
  8. NM-6603 [Concomitant]
     Active Substance: NM-6603

REACTIONS (11)
  - Myalgia [None]
  - Muscle spasms [None]
  - Fatigue [None]
  - Dizziness [None]
  - Pain in extremity [None]
  - Pain in extremity [None]
  - Headache [None]
  - Lethargy [None]
  - Gait disturbance [None]
  - Muscular weakness [None]
  - Dysstasia [None]

NARRATIVE: CASE EVENT DATE: 20240223
